FAERS Safety Report 8274464-X (Version None)
Quarter: 2012Q2

REPORT INFORMATION
  Report Type: 
  Country: None (occurrence: None)
  Receive Date: 20120411
  Receipt Date: 20120404
  Transmission Date: 20120825
  Serious: Yes (Other)
  Sender: FDA-Public Use
  Company Number: PHHY2012RU003859

PATIENT
  Age: 84 Year
  Sex: Female

DRUGS (2)
  1. EXELON [Suspect]
     Dosage: UNK UKN, UNK
     Route: 062
  2. LUCENTIS [Suspect]
     Indication: RETINAL VASCULAR THROMBOSIS
     Dosage: UNK UKN, UNK
     Dates: start: 20111107

REACTIONS (4)
  - INSOMNIA [None]
  - DRUG INEFFECTIVE [None]
  - MENTAL IMPAIRMENT [None]
  - FALL [None]
